FAERS Safety Report 13784149 (Version 24)
Quarter: 2023Q1

REPORT INFORMATION
  Report Type: Report from Study
  Country: US (occurrence: US)
  Receive Date: 20170724
  Receipt Date: 20230120
  Transmission Date: 20230418
  Serious: Yes (Other)
  Sender: FDA-Public Use
  Company Number: US-JAZZ-2017-US-008475

PATIENT
  Age: 61 Year
  Sex: Female

DRUGS (47)
  1. XYREM [Suspect]
     Active Substance: SODIUM OXYBATE
     Indication: Narcolepsy
     Dosage: 2.25 G, BID
     Route: 048
     Dates: start: 201203, end: 201203
  2. XYREM [Suspect]
     Active Substance: SODIUM OXYBATE
     Dosage: DOSE ADJUSTMENTS
     Route: 048
     Dates: start: 201203, end: 201204
  3. XYREM [Suspect]
     Active Substance: SODIUM OXYBATE
     Dosage: 4.5 G, BID
     Route: 048
     Dates: start: 201204, end: 201512
  4. XYREM [Suspect]
     Active Substance: SODIUM OXYBATE
     Dosage: 3.75 G, BID
     Route: 048
     Dates: start: 201707, end: 2017
  5. XYREM [Suspect]
     Active Substance: SODIUM OXYBATE
     Dosage: 4.5 G, BID
     Route: 048
     Dates: start: 2017
  6. XYREM [Suspect]
     Active Substance: SODIUM OXYBATE
     Dosage: 3.75 G, BID
     Route: 048
     Dates: start: 20170908
  7. XYREM [Suspect]
     Active Substance: SODIUM OXYBATE
     Dosage: 4.5 G, BID
     Route: 048
  8. XYREM [Suspect]
     Active Substance: SODIUM OXYBATE
     Dosage: 4 G, BID
     Route: 048
  9. XYREM [Suspect]
     Active Substance: SODIUM OXYBATE
     Dosage: 3 G, TID
     Route: 048
     Dates: end: 202006
  10. STRATTERA [Suspect]
     Active Substance: ATOMOXETINE HYDROCHLORIDE
     Indication: Somnolence
  11. NUVIGIL [Suspect]
     Active Substance: ARMODAFINIL
     Indication: Somnolence
     Dosage: UNK
  12. NUVIGIL [Suspect]
     Active Substance: ARMODAFINIL
     Dosage: UNK
  13. RITALIN [Suspect]
     Active Substance: METHYLPHENIDATE HYDROCHLORIDE
     Indication: Somnolence
     Dosage: UNK
  14. AMLODIPINE [Suspect]
     Active Substance: AMLODIPINE BESYLATE
  15. ADDERALL [Suspect]
     Active Substance: AMPHETAMINE ASPARTATE\AMPHETAMINE SULFATE\DEXTROAMPHETAMINE SACCHARATE\DEXTROAMPHETAMINE SULFATE
     Indication: Somnolence
     Dosage: UNK
     Dates: start: 20191001
  16. TRAMADOL [Suspect]
     Active Substance: TRAMADOL
     Indication: Hip arthroplasty
     Route: 065
  17. BONIVA [Concomitant]
     Active Substance: IBANDRONATE SODIUM
  18. ERYTHROMYCIN [Concomitant]
     Active Substance: ERYTHROMYCIN
     Dosage: UNK
  19. SUNOSI [Concomitant]
     Active Substance: SOLRIAMFETOL
     Dosage: 2.25G, BID
     Route: 048
     Dates: start: 201203, end: 201203
  20. SUNOSI [Concomitant]
     Active Substance: SOLRIAMFETOL
     Dosage: UNK
     Route: 048
     Dates: start: 201203, end: 201204
  21. SUNOSI [Concomitant]
     Active Substance: SOLRIAMFETOL
     Dosage: 4.5G, BID
     Route: 048
     Dates: start: 201204, end: 201512
  22. SUNOSI [Concomitant]
     Active Substance: SOLRIAMFETOL
     Dosage: 3.75G, BID
     Route: 048
     Dates: start: 201709
  23. SUNOSI [Concomitant]
     Active Substance: SOLRIAMFETOL
     Dosage: 3.75G, BID
     Route: 048
     Dates: start: 2017, end: 2017
  24. SUNOSI [Concomitant]
     Active Substance: SOLRIAMFETOL
     Dosage: 4.5G, BID
     Route: 048
     Dates: start: 2017, end: 201709
  25. FLAXSEED [Concomitant]
     Active Substance: FLAX SEED
     Dosage: UNK
     Dates: start: 20150909
  26. KRILL OIL [Concomitant]
     Active Substance: DIETARY SUPPLEMENT\KRILL OIL
  27. MAGNESIUM MALATE [Concomitant]
     Active Substance: MAGNESIUM MALATE
  28. RETINOL [Concomitant]
     Active Substance: RETINOL
     Dosage: UNK
     Dates: start: 20150909
  29. VITAMIN D3 [Concomitant]
     Active Substance: CHOLECALCIFEROL
     Dosage: UNK
     Dates: start: 20150909
  30. TOCOPHEROL [Concomitant]
     Active Substance: TOCOPHEROL
     Dosage: UNK
     Dates: start: 20150909
  31. XANAX [Concomitant]
     Active Substance: ALPRAZOLAM
  32. ZINC [Concomitant]
     Active Substance: ZINC
  33. CEPHALEXIN [Concomitant]
     Active Substance: CEPHALEXIN
  34. NORCO [Concomitant]
     Active Substance: ACETAMINOPHEN\HYDROCODONE BITARTRATE
  35. PYRIDIUM [Concomitant]
     Active Substance: PHENAZOPYRIDINE
  36. ALEVE [Concomitant]
     Active Substance: NAPROXEN SODIUM
  37. CALCIUM\VITAMIN D [Concomitant]
     Active Substance: CALCIUM\VITAMIN D
  38. FEMHRT [Concomitant]
     Active Substance: ETHINYL ESTRADIOL\NORETHINDRONE ACETATE
  39. ASCORBIC ACID [Concomitant]
     Active Substance: ASCORBIC ACID
     Dosage: UNK
     Dates: start: 20010101
  40. VITAMINS [Concomitant]
     Active Substance: VITAMINS
     Dosage: UNK
     Dates: start: 20010101
  41. VITAMIN B COMPLEX [Concomitant]
     Active Substance: CYANOCOBALAMIN\DEXPANTHENOL\NIACINAMIDE\PYRIDOXINE HYDROCHLORIDE\RIBOFLAVIN 5^-PHOSPHATE SODIUM\THIA
     Dosage: UNK
     Dates: start: 20150909
  42. ALCOHOL [Concomitant]
     Active Substance: ALCOHOL
     Dosage: UNK
     Dates: start: 20150909
  43. FISH OIL [Concomitant]
     Active Substance: FISH OIL
     Dosage: UNK
     Dates: start: 20191001
  44. IMVEXXY [Concomitant]
     Active Substance: ESTRADIOL
     Dosage: UNK
     Dates: start: 20191001
  45. BOTOX [Concomitant]
     Active Substance: ONABOTULINUMTOXINA
     Dosage: UNK
     Dates: start: 20191001
  46. MIRALAX [Concomitant]
     Active Substance: POLYETHYLENE GLYCOL 3350
     Dosage: UNK
     Dates: start: 20190901
  47. OLMESARTAN MEDOXOMIL [Concomitant]
     Active Substance: OLMESARTAN MEDOXOMIL
     Dosage: UNK
     Dates: start: 20221205

REACTIONS (32)
  - Arthritis [Recovering/Resolving]
  - Abnormal faeces [Not Recovered/Not Resolved]
  - Tachycardia [Recovered/Resolved]
  - Stress [Unknown]
  - Feeling jittery [Not Recovered/Not Resolved]
  - Restlessness [Unknown]
  - Sinus disorder [Recovering/Resolving]
  - Libido decreased [Unknown]
  - Feeling abnormal [Unknown]
  - Acne [Unknown]
  - Dehydration [Not Recovered/Not Resolved]
  - Back pain [Recovered/Resolved]
  - Paraesthesia [Not Recovered/Not Resolved]
  - Muscle spasms [Unknown]
  - Feeling drunk [Unknown]
  - Oedema peripheral [Not Recovered/Not Resolved]
  - Hypnagogic hallucination [Unknown]
  - Agitation [Unknown]
  - Hypertension [Not Recovered/Not Resolved]
  - Sedation [Unknown]
  - Headache [Unknown]
  - Hyperhidrosis [Unknown]
  - Diarrhoea [Not Recovered/Not Resolved]
  - Confusional state [Not Recovered/Not Resolved]
  - Tremor [Not Recovered/Not Resolved]
  - Dry mouth [Unknown]
  - Depression [Unknown]
  - Fatigue [Not Recovered/Not Resolved]
  - Tardive dyskinesia [Not Recovered/Not Resolved]
  - Dizziness [Unknown]
  - Drug ineffective [Unknown]
  - Wrong technique in product usage process [Unknown]

NARRATIVE: CASE EVENT DATE: 20120301
